FAERS Safety Report 20736883 (Version 2)
Quarter: 2022Q2

REPORT INFORMATION
  Report Type: Spontaneous
  Country: US (occurrence: US)
  Receive Date: 20220421
  Receipt Date: 20220520
  Transmission Date: 20220721
  Serious: No
  Sender: FDA-Public Use
  Company Number: US-BRISTOL-MYERS SQUIBB COMPANY-2022-021638

PATIENT
  Age: 78 Year
  Sex: Male

DRUGS (1)
  1. REVLIMID [Suspect]
     Active Substance: LENALIDOMIDE
     Indication: Plasma cell myeloma
     Dosage: 20 MILLIGRAM, ^TAKE 1 CAPSULE BY MOUTH EVERYDAY FOR 14 DAYS ON THEN 7 DAYS OFF^
     Route: 048

REACTIONS (2)
  - Herpes zoster [Unknown]
  - Liver function test abnormal [Unknown]
